FAERS Safety Report 9375109 (Version 1)
Quarter: 2013Q2

REPORT INFORMATION
  Report Type: Spontaneous
  Country: JP (occurrence: JP)
  Receive Date: 20130628
  Receipt Date: 20130628
  Transmission Date: 20140414
  Serious: Yes (Other)
  Sender: FDA-Public Use
  Company Number: JP-OTSUKA-JP-2013-12377

PATIENT
  Age: 84 Year
  Sex: Male

DRUGS (1)
  1. PLETAAL [Suspect]
     Dosage: UNK
     Route: 048
     Dates: end: 201306

REACTIONS (1)
  - Postoperative ileus [Unknown]
